FAERS Safety Report 20444660 (Version 1)
Quarter: 2022Q1

REPORT INFORMATION
  Report Type: Spontaneous
  Country: US (occurrence: None)
  Receive Date: 20220207
  Receipt Date: 20220207
  Transmission Date: 20220423
  Serious: Yes (Disabling)
  Sender: FDA-Public Use
  Company Number: None

PATIENT
  Age: 45 Year
  Sex: Female
  Weight: 135 kg

DRUGS (3)
  1. ODOR EATERS [Suspect]
     Active Substance: TOLNAFTATE
     Indication: Fungal skin infection
     Dosage: OTHER ROUTE : SPRAY ON FEET AND IN SHOES;?
     Route: 050
  2. ODOR EATERS [Suspect]
     Active Substance: TOLNAFTATE
     Indication: Hyperhidrosis
  3. ODOR EATERS [Suspect]
     Active Substance: TOLNAFTATE
     Indication: Product used for unknown indication

REACTIONS (2)
  - Ankle fracture [None]
  - Impaired healing [None]

NARRATIVE: CASE EVENT DATE: 20210501
